FAERS Safety Report 6190534-4 (Version None)
Quarter: 2009Q2

REPORT INFORMATION
  Report Type: 
  Country: None (occurrence: None)
  Receive Date: 20090514
  Receipt Date: 20090508
  Transmission Date: 20091009
  Serious: Yes (Hospitalization, Other)
  Sender: FDA-Public Use
  Company Number: PHHY2009ES16728

PATIENT
  Age: 53 Year
  Sex: Male

DRUGS (2)
  1. CYCLOSPORINE [Suspect]
     Indication: RENAL TRANSPLANT
     Dosage: 10 MG/KG/DAY
  2. STEROIDS NOS [Suspect]
     Indication: RENAL TRANSPLANT
     Dosage: 1 MG/KG/DAY

REACTIONS (19)
  - ABDOMINAL PAIN LOWER [None]
  - ABSCESS INTESTINAL [None]
  - ACQUIRED HYDROCELE [None]
  - ACTINOMYCOSIS [None]
  - CHRONIC ALLOGRAFT NEPHROPATHY [None]
  - COLECTOMY [None]
  - COLON NEOPLASM [None]
  - COLONIC POLYP [None]
  - DIVERTICULITIS [None]
  - DIVERTICULUM INTESTINAL [None]
  - HAEMODIALYSIS [None]
  - HIP ARTHROPLASTY [None]
  - MASS [None]
  - ORCHITIS [None]
  - OSTEONECROSIS [None]
  - PYREXIA [None]
  - RENAL IMPAIRMENT [None]
  - RENAL TRANSPLANT [None]
  - TESTIS DISCOMFORT [None]
